FAERS Safety Report 17774382 (Version 1)
Quarter: 2020Q2

REPORT INFORMATION
  Report Type: Report from Study
  Country: JP (occurrence: JP)
  Receive Date: 20200513
  Receipt Date: 20200513
  Transmission Date: 20200714
  Serious: Yes (Other)
  Sender: FDA-Public Use
  Company Number: NVSJ2020JP003313

PATIENT
  Age: 15 Year
  Sex: Female
  Weight: 51.2 kg

DRUGS (32)
  1. ILARIS [Suspect]
     Active Substance: CANAKINUMAB
     Dosage: 100 MG
     Route: 058
     Dates: start: 20180104
  2. ILARIS [Suspect]
     Active Substance: CANAKINUMAB
     Dosage: 150 MG
     Route: 058
     Dates: start: 20180730
  3. ILARIS [Suspect]
     Active Substance: CANAKINUMAB
     Dosage: 75 MG
     Route: 058
     Dates: start: 20181015
  4. ILARIS [Suspect]
     Active Substance: CANAKINUMAB
     Dosage: 75 MG
     Route: 058
     Dates: start: 20190221
  5. ILARIS [Suspect]
     Active Substance: CANAKINUMAB
     Dosage: 75 MG
     Route: 058
     Dates: start: 20190318
  6. PREDONINE [Suspect]
     Active Substance: PREDNISOLONE
     Indication: FAMILIAL MEDITERRANEAN FEVER
     Dosage: UNK
     Route: 048
  7. ALFAROL [Concomitant]
     Active Substance: ALFACALCIDOL
     Indication: FAMILIAL MEDITERRANEAN FEVER
     Dosage: UNK
     Route: 048
  8. ILARIS [Suspect]
     Active Substance: CANAKINUMAB
     Dosage: 150 MG
     Route: 058
     Dates: start: 20180125
  9. ILARIS [Suspect]
     Active Substance: CANAKINUMAB
     Dosage: 150 MG
     Route: 058
     Dates: start: 20180604
  10. ILARIS [Suspect]
     Active Substance: CANAKINUMAB
     Dosage: 75 MG
     Route: 058
     Dates: start: 20180827
  11. ILARIS [Suspect]
     Active Substance: CANAKINUMAB
     Indication: FAMILIAL MEDITERRANEAN FEVER
     Dosage: 150 MG, 4W
     Route: 058
     Dates: start: 20171114
  12. ILARIS [Suspect]
     Active Substance: CANAKINUMAB
     Dosage: 75 MG
     Route: 058
     Dates: start: 20181105
  13. ILARIS [Suspect]
     Active Substance: CANAKINUMAB
     Dosage: 75 MG
     Route: 058
     Dates: start: 20190124
  14. ILARIS [Suspect]
     Active Substance: CANAKINUMAB
     Dosage: 150 MG
     Route: 058
     Dates: start: 20180215
  15. ILARIS [Suspect]
     Active Substance: CANAKINUMAB
     Dosage: 150 MG
     Route: 058
     Dates: start: 20180315
  16. ILARIS [Suspect]
     Active Substance: CANAKINUMAB
     Dosage: 150 MG
     Route: 058
     Dates: start: 20180702
  17. ILARIS [Suspect]
     Active Substance: CANAKINUMAB
     Dosage: 75 MG
     Route: 058
     Dates: start: 20181227
  18. ILARIS [Suspect]
     Active Substance: CANAKINUMAB
     Dosage: 75 MG
     Route: 058
     Dates: start: 20190415
  19. ILARIS [Suspect]
     Active Substance: CANAKINUMAB
     Dosage: 120 MG
     Route: 058
     Dates: start: 20190905
  20. ILARIS [Suspect]
     Active Substance: CANAKINUMAB
     Dosage: 120 MG
     Route: 058
     Dates: start: 20191003
  21. ILARIS [Suspect]
     Active Substance: CANAKINUMAB
     Dosage: 120 MG
     Route: 058
     Dates: start: 20191031
  22. ILARIS [Suspect]
     Active Substance: CANAKINUMAB
     Dosage: 75 MG
     Route: 058
     Dates: start: 20180920
  23. ILARIS [Suspect]
     Active Substance: CANAKINUMAB
     Dosage: 105 MG
     Route: 058
     Dates: start: 20190711
  24. MIYA-BM [Concomitant]
     Active Substance: CLOSTRIDIUM BUTYRICUM SPORES STRAIN M-55
     Indication: FAMILIAL MEDITERRANEAN FEVER
     Dosage: UNK
     Route: 048
  25. COLCHICINE. [Concomitant]
     Active Substance: COLCHICINE
     Dosage: 2.0 MG
     Route: 048
     Dates: start: 20181017, end: 20191112
  26. ILARIS [Suspect]
     Active Substance: CANAKINUMAB
     Dosage: 150 MG
     Route: 058
     Dates: start: 20180412
  27. ILARIS [Suspect]
     Active Substance: CANAKINUMAB
     Dosage: 150 MG
     Route: 058
     Dates: start: 20180507
  28. ILARIS [Suspect]
     Active Substance: CANAKINUMAB
     Dosage: 75 MG
     Route: 058
     Dates: start: 20181203
  29. ILARIS [Suspect]
     Active Substance: CANAKINUMAB
     Dosage: 120 MG
     Route: 058
     Dates: start: 20190805
  30. ILARIS [Suspect]
     Active Substance: CANAKINUMAB
     Dosage: 75 MG
     Route: 058
     Dates: start: 20190516
  31. ILARIS [Suspect]
     Active Substance: CANAKINUMAB
     Dosage: 75 MG
     Route: 058
     Dates: start: 20190613
  32. COLCHICINE. [Concomitant]
     Active Substance: COLCHICINE
     Indication: FAMILIAL MEDITERRANEAN FEVER
     Dosage: 2.0 MG
     Route: 048
     Dates: start: 20180502, end: 20181016

REACTIONS (20)
  - Rash [Recovered/Resolved]
  - Arthralgia [Recovered/Resolved]
  - Alanine aminotransferase increased [Recovered/Resolved]
  - C-reactive protein increased [Unknown]
  - Alanine aminotransferase increased [Recovered/Resolved]
  - White blood cell count increased [Recovered/Resolved]
  - Aspartate aminotransferase increased [Recovered/Resolved]
  - Abdominal pain [Recovering/Resolving]
  - Neutrophil count increased [Recovered/Resolved]
  - Alanine aminotransferase increased [Recovered/Resolved]
  - Haematocrit decreased [Recovered/Resolved]
  - Myalgia [Recovered/Resolved]
  - Myalgia [Recovered/Resolved]
  - Myalgia [Recovering/Resolving]
  - Rash [Recovered/Resolved]
  - Blood creatine phosphokinase increased [Recovering/Resolving]
  - Arthralgia [Recovered/Resolved]
  - Haemoglobin decreased [Recovered/Resolved]
  - C-reactive protein increased [Recovered/Resolved]
  - C-reactive protein increased [Recovered/Resolved]

NARRATIVE: CASE EVENT DATE: 20171214
